FAERS Safety Report 5268570-1 (Version None)
Quarter: 2007Q1

REPORT INFORMATION
  Report Type: 
  Country: None (occurrence: None)
  Receive Date: 20070315
  Receipt Date: 20070315
  Transmission Date: 20070707
  Serious: Yes (Hospitalization)
  Sender: FDA-Public Use
  Company Number: None

PATIENT
  Age: 89 Year
  Sex: Female

DRUGS (1)
  1. LYRICA [Suspect]
     Dosage: 50MG  BID  PO
     Route: 048
     Dates: start: 20070201

REACTIONS (1)
  - CARDIAC FAILURE CONGESTIVE [None]
